FAERS Safety Report 9301954 (Version 1)
Quarter: 2013Q2

REPORT INFORMATION
  Report Type: Spontaneous
  Country: US (occurrence: US)
  Receive Date: 20130521
  Receipt Date: 20130521
  Transmission Date: 20140414
  Serious: No
  Sender: FDA-Public Use
  Company Number: US-ASTRAZENECA-2013SE31848

PATIENT
  Age: 62 Year
  Sex: Female
  Weight: 81.2 kg

DRUGS (7)
  1. NEXIUM [Suspect]
     Indication: GASTROOESOPHAGEAL REFLUX DISEASE
     Route: 048
  2. LISINOPRIL [Suspect]
     Dosage: PRN
     Route: 048
  3. PRILOSEC OTC [Suspect]
     Indication: GASTROOESOPHAGEAL REFLUX DISEASE
     Route: 048
  4. MOBIC [Concomitant]
  5. LOVASTATIN [Concomitant]
  6. LORTAB [Concomitant]
  7. VITAMIN D [Concomitant]

REACTIONS (3)
  - Gastrooesophageal reflux disease [Unknown]
  - Intentional drug misuse [Unknown]
  - Drug ineffective [Unknown]
